FAERS Safety Report 23642168 (Version 1)
Quarter: 2024Q1

REPORT INFORMATION
  Report Type: Spontaneous
  Country: BR (occurrence: BR)
  Receive Date: 20240318
  Receipt Date: 20240318
  Transmission Date: 20240409
  Serious: Yes (Other)
  Sender: FDA-Public Use
  Company Number: BR-TAKEDA-2024TUS023342

PATIENT
  Sex: Female
  Weight: 70 kg

DRUGS (17)
  1. MESALAMINE [Suspect]
     Active Substance: MESALAMINE
     Indication: Diverticulitis
     Dosage: UNK UNK, Q12H
     Route: 048
     Dates: start: 2013
  2. MESALAMINE [Suspect]
     Active Substance: MESALAMINE
     Indication: Diverticulitis
     Dosage: 1000 MILLIGRAM, QD
     Route: 065
  3. MESALAMINE [Suspect]
     Active Substance: MESALAMINE
     Dosage: 500 MILLIGRAM, QD
     Route: 065
  4. MESALAMINE [Suspect]
     Active Substance: MESALAMINE
     Indication: Diverticulitis
     Dosage: UNK
     Route: 065
  5. TRIMEBUTINE MALEATE [Concomitant]
     Active Substance: TRIMEBUTINE MALEATE
     Indication: Diverticulum
     Dosage: 200 MILLIGRAM, QD
  6. TRIMEBUTINE MALEATE [Concomitant]
     Active Substance: TRIMEBUTINE MALEATE
     Indication: Diverticulitis
  7. OTILONIUM BROMIDE [Concomitant]
     Active Substance: OTILONIUM BROMIDE
     Indication: Diverticulitis
     Dosage: UNK
  8. OTILONIUM BROMIDE [Concomitant]
     Active Substance: OTILONIUM BROMIDE
     Indication: Diverticulum
  9. Bifilac [Concomitant]
     Indication: Diverticulitis
     Dosage: UNK UNK, QD
  10. Bifilac [Concomitant]
     Indication: Diverticulum
  11. ATENOLOL [Concomitant]
     Active Substance: ATENOLOL
     Indication: Blood pressure abnormal
     Dosage: UNK
  12. ATENOLOL [Concomitant]
     Active Substance: ATENOLOL
     Indication: Arrhythmia
  13. BROMAZEPAM [Concomitant]
     Active Substance: BROMAZEPAM
     Indication: Depression
     Dosage: 3 MILLIGRAM
  14. VITAMIN B-COMPLEX [Concomitant]
     Active Substance: DEXPANTHENOL\NIACINAMIDE\PYRIDOXINE HYDROCHLORIDE\RIBOFLAVIN 5^-PHOSPHATE SODIUM\THIAMINE HYDROCHLOR
     Indication: Anaemia
     Dosage: UNK
  15. QUETIAPINE FUMARATE [Concomitant]
     Active Substance: QUETIAPINE FUMARATE
     Indication: Anxiety
     Dosage: 25 MILLIGRAM
  16. QUETIAPINE FUMARATE [Concomitant]
     Active Substance: QUETIAPINE FUMARATE
     Indication: Emotional disorder
  17. QUETIAPINE FUMARATE [Concomitant]
     Active Substance: QUETIAPINE FUMARATE
     Indication: Depression

REACTIONS (15)
  - Syncope [Unknown]
  - Rectal haemorrhage [Unknown]
  - Product residue present [Unknown]
  - Drug ineffective [Unknown]
  - Gastrointestinal disorder [Unknown]
  - Product solubility abnormal [Unknown]
  - Pain [Unknown]
  - Depression [Unknown]
  - Feeding disorder [Unknown]
  - Fear of eating [Unknown]
  - Loss of personal independence in daily activities [Unknown]
  - Malaise [Unknown]
  - Muscle spasms [Unknown]
  - Abdominal pain [Unknown]
  - Asthenia [Unknown]
